FAERS Safety Report 26101988 (Version 1)
Quarter: 2025Q4

REPORT INFORMATION
  Report Type: Spontaneous
  Country: US (occurrence: US)
  Receive Date: 20251128
  Receipt Date: 20251128
  Transmission Date: 20260118
  Serious: Yes (Other)
  Sender: DR REDDYS
  Company Number: US-DRL-USA-USA/2025/11/017870

PATIENT
  Age: 55 Year
  Sex: Female

DRUGS (18)
  1. DOXORUBICIN [Suspect]
     Active Substance: DOXORUBICIN
     Indication: Epstein-Barr virus associated lymphoma
  2. DOXORUBICIN [Suspect]
     Active Substance: DOXORUBICIN
     Indication: Lymphoma
  3. DOXORUBICIN [Suspect]
     Active Substance: DOXORUBICIN
     Indication: B-cell lymphoma
  4. CYCLOPHOSPHAMIDE [Suspect]
     Active Substance: CYCLOPHOSPHAMIDE
     Indication: Epstein-Barr virus associated lymphoma
  5. CYCLOPHOSPHAMIDE [Suspect]
     Active Substance: CYCLOPHOSPHAMIDE
     Indication: Lymphoma
  6. CYCLOPHOSPHAMIDE [Suspect]
     Active Substance: CYCLOPHOSPHAMIDE
     Indication: B-cell lymphoma
  7. PREDNISONE [Suspect]
     Active Substance: PREDNISONE
     Indication: Epstein-Barr virus associated lymphoma
  8. PREDNISONE [Suspect]
     Active Substance: PREDNISONE
     Indication: Lymphoma
  9. PREDNISONE [Suspect]
     Active Substance: PREDNISONE
     Indication: B-cell lymphoma
  10. ETOPOSIDE [Suspect]
     Active Substance: ETOPOSIDE
     Indication: Epstein-Barr virus associated lymphoma
  11. ETOPOSIDE [Suspect]
     Active Substance: ETOPOSIDE
     Indication: Lymphoma
  12. ETOPOSIDE [Suspect]
     Active Substance: ETOPOSIDE
     Indication: B-cell lymphoma
  13. VINCRISTINE [Suspect]
     Active Substance: VINCRISTINE
     Indication: Epstein-Barr virus associated lymphoma
  14. VINCRISTINE [Suspect]
     Active Substance: VINCRISTINE
     Indication: Lymphoma
  15. VINCRISTINE [Suspect]
     Active Substance: VINCRISTINE
     Indication: B-cell lymphoma
  16. RITUXIMAB [Suspect]
     Active Substance: RITUXIMAB
     Indication: Epstein-Barr virus associated lymphoma
  17. RITUXIMAB [Suspect]
     Active Substance: RITUXIMAB
     Indication: Lymphoma
  18. RITUXIMAB [Suspect]
     Active Substance: RITUXIMAB
     Indication: B-cell lymphoma

REACTIONS (5)
  - Stress cardiomyopathy [Unknown]
  - Ileus [Unknown]
  - Clostridium difficile infection [Unknown]
  - Deep vein thrombosis [Unknown]
  - Product use in unapproved indication [Unknown]
